FAERS Safety Report 15363540 (Version 4)
Quarter: 2019Q3

REPORT INFORMATION
  Report Type: Report from Study
  Country: US (occurrence: US)
  Receive Date: 20180907
  Receipt Date: 20190917
  Transmission Date: 20191004
  Serious: Yes (Hospitalization)
  Sender: FDA-Public Use
  Company Number: US-ACTELION-A-NJ2017-152084

PATIENT
  Sex: Female

DRUGS (1)
  1. OPSUMIT [Suspect]
     Active Substance: MACITENTAN
     Indication: PULMONARY ARTERIAL HYPERTENSION
     Dosage: 10 MG, QD
     Route: 048
     Dates: start: 20170106

REACTIONS (7)
  - Nasopharyngitis [Unknown]
  - Hospitalisation [Unknown]
  - Cough [Unknown]
  - Malaise [Not Recovered/Not Resolved]
  - Diverticulitis [Unknown]
  - Sinusitis [Unknown]
  - Atrial fibrillation [Unknown]
